FAERS Safety Report 12615545 (Version 1)
Quarter: 2016Q3

REPORT INFORMATION
  Report Type: Spontaneous
  Country: US (occurrence: US)
  Receive Date: 20160802
  Receipt Date: 20160802
  Transmission Date: 20161109
  Serious: Yes (Other)
  Sender: FDA-Public Use
  Company Number: US-JNJCP-30000347377

PATIENT
  Age: 37 Year
  Sex: Female

DRUGS (2)
  1. JOHNSONS PRODUCTS [Suspect]
     Active Substance: UNSPECIFIED INGREDIENT
     Indication: THERAPEUTIC SKIN CARE TOPICAL
     Route: 061
  2. LEVAQUIN [Suspect]
     Active Substance: LEVOFLOXACIN
     Indication: ANTIBIOTIC THERAPY
     Dosage: MORE FOR THAN 20 YEARS
     Route: 065

REACTIONS (2)
  - Asthenia [None]
  - Ovarian failure [Unknown]
